FAERS Safety Report 5447250-3 (Version None)
Quarter: 2007Q3

REPORT INFORMATION
  Report Type: 
  Country: None (occurrence: None)
  Receive Date: 20070905
  Receipt Date: 20070905
  Transmission Date: 20080115
  Serious: Yes (Other)
  Sender: FDA-Public Use
  Company Number: None

PATIENT
  Sex: Female
  Weight: 76.6579 kg

DRUGS (7)
  1. MELOXICAM [Suspect]
  2. LODINE [Concomitant]
  3. MOTRIN 600 [Concomitant]
  4. RELAFEN [Concomitant]
  5. FELDENE [Concomitant]
  6. NAPROXEN [Concomitant]
  7. VIOXX [Concomitant]

REACTIONS (3)
  - ARTHRALGIA [None]
  - JOINT SWELLING [None]
  - PHARMACEUTICAL PRODUCT COMPLAINT [None]
